FAERS Safety Report 16357253 (Version 1)
Quarter: 2019Q2

REPORT INFORMATION
  Report Type: Spontaneous
  Country: US (occurrence: US)
  Receive Date: 20190527
  Receipt Date: 20190527
  Transmission Date: 20190711
  Serious: No
  Sender: FDA-Public Use
  Company Number: US-TORRENT-00007763

PATIENT
  Age: 38 Year
  Sex: Male
  Weight: 89 kg

DRUGS (2)
  1. LOSARTAN AND HYDROCHLOROTHIAZIDE [Suspect]
     Active Substance: HYDROCHLOROTHIAZIDE\LOSARTAN POTASSIUM
     Indication: HYPERTENSION
     Dosage: 50MG/12.5 MG- ONCE A DAY
     Dates: end: 20190224
  2. ATENOLOL. [Concomitant]
     Active Substance: ATENOLOL
     Indication: BLOOD PRESSURE MEASUREMENT
     Dosage: UNKNOWN

REACTIONS (2)
  - Dyspepsia [Recovered/Resolved]
  - Gastric disorder [Unknown]
